FAERS Safety Report 25073970 (Version 2)
Quarter: 2025Q1

REPORT INFORMATION
  Report Type: Spontaneous
  Country: DE (occurrence: DE)
  Receive Date: 20250313
  Receipt Date: 20250320
  Transmission Date: 20250408
  Serious: Yes (Other)
  Sender: EMD SERONO INC
  Company Number: DE-Merck Healthcare KGaA-2024065083

PATIENT
  Age: 55 Year
  Sex: Male

DRUGS (14)
  1. MAVENCLAD [Suspect]
     Active Substance: CLADRIBINE
     Indication: Multiple sclerosis
     Dates: start: 20221206, end: 20221210
  2. MAVENCLAD [Suspect]
     Active Substance: CLADRIBINE
     Dates: start: 202301, end: 202301
  3. CORVATON FORTE [Concomitant]
     Indication: Cardiac disorder
  4. PREGABAHEXAL [Concomitant]
     Indication: Pain
  5. SPIRONOLACTONE [Concomitant]
     Active Substance: SPIRONOLACTONE
     Indication: Drainage
  6. METFORMIN HYDROCHLORIDE [Concomitant]
     Active Substance: METFORMIN HYDROCHLORIDE
     Indication: Type 2 diabetes mellitus
  7. CHOLECALCIFEROL [Concomitant]
     Active Substance: CHOLECALCIFEROL
     Indication: Osteoporosis
     Dosage: DEKRISTOL 20000 LE CAPSULES
  8. ATORVASTATIN CALCIUM [Concomitant]
     Active Substance: ATORVASTATIN CALCIUM
     Indication: Blood cholesterol increased
  9. PANTOPRAZOL DENK [Concomitant]
     Indication: Abdominal discomfort
  10. ASPIRIN [Concomitant]
     Active Substance: ASPIRIN
     Indication: Coagulopathy
  11. BISOPROLOL 1A PHARMA [Concomitant]
     Indication: Cardiac disorder
  12. DISTIGMINE BROMIDE [Concomitant]
     Active Substance: DISTIGMINE BROMIDE
     Indication: Bladder disorder
  13. TAMSUBLOCK DUO [Concomitant]
     Indication: Benign prostatic hyperplasia
     Dosage: DUO 0.5 MG/0.4 MG CAPSULES
  14. EZETIMIBE [Concomitant]
     Active Substance: EZETIMIBE
     Indication: Blood cholesterol increased

REACTIONS (2)
  - Pancytopenia [Not Recovered/Not Resolved]
  - Glomerular filtration rate decreased [Recovered/Resolved]

NARRATIVE: CASE EVENT DATE: 20240101
